FAERS Safety Report 21706930 (Version 1)
Quarter: 2022Q4

REPORT INFORMATION
  Report Type: Spontaneous
  Country: CH (occurrence: CH)
  Receive Date: 20221209
  Receipt Date: 20221209
  Transmission Date: 20230113
  Serious: Yes (Hospitalization, Other)
  Sender: FDA-Public Use
  Company Number: CH-SM-2022-16924

PATIENT
  Age: 42 Year
  Sex: Male

DRUGS (22)
  1. MIRTAZAPINE [Suspect]
     Active Substance: MIRTAZAPINE
     Indication: Product used for unknown indication
     Dosage: 45 MILLIGRAM DAILY;  MIRTAZAPIN-MEPHA  (MIRTAZAPINE) 45 MG ORAL INTAKE 0-0-0-1, SINCE UNKNOWN DATE U
     Route: 048
     Dates: end: 20220527
  2. PANTOPRAZOLE SODIUM [Suspect]
     Active Substance: PANTOPRAZOLE SODIUM
     Indication: Product used for unknown indication
     Dosage: 40 MILLIGRAM DAILY; PANTOPRAZOLE MEPHA  40MG ORAL INTAKE 1-0-0-0 SINCE UNKNOWN DATE UNTIL 05/27/2022
     Route: 048
     Dates: end: 20220527
  3. GILENYA [Suspect]
     Active Substance: FINGOLIMOD HYDROCHLORIDE
     Indication: Multiple sclerosis
     Dosage: GILENYA  (FINGOLIMOD) 0.5MG ORAL INTAKE SINCE 2014, PAUSED SINCE 19.05.22, RESTARTED ON 29 , UNIT DO
     Route: 048
     Dates: start: 2014, end: 20220519
  4. GILENYA [Suspect]
     Active Substance: FINGOLIMOD HYDROCHLORIDE
     Dosage: GILENYA  (FINGOLIMOD) 0.5MG ORAL INTAKE SINCE 2014, PAUSED SINCE 19.05.22, RESTARTED ON 29 , UNIT DO
     Route: 048
     Dates: start: 20220529
  5. SPIRIVA [Suspect]
     Active Substance: TIOTROPIUM BROMIDE MONOHYDRATE
     Indication: Product used for unknown indication
     Dosage: 5 MICROGRAM DAILY; SPIRIVA  RESPIMAT  (TIOTROPIUM) 2.5MCG 1-0-1-0 INHALATION, STARTING SPRING 2022 (
     Route: 055
     Dates: start: 202204, end: 202205
  6. SPIRIVA [Suspect]
     Active Substance: TIOTROPIUM BROMIDE MONOHYDRATE
     Dosage: SPIRIVA  RESPIMAT  (TIOTROPIUM) 2.5MCG 1-0-1-0 INHALATION, STARTING SPRING 2022 (EXACT DATE ,  UNIT
     Route: 055
     Dates: start: 202205
  7. Mucofluid [Concomitant]
     Indication: Product used for unknown indication
     Dosage: 600 MILLIGRAM DAILY; MUCOFLUID  (ACETYLCYSTEIN) 600MG 1-0-0-0
     Route: 048
  8. PRAMIPEXOLE [Concomitant]
     Active Substance: PRAMIPEXOLE
     Indication: Product used for unknown indication
     Dosage: .25 MILLIGRAM DAILY; SIFROL  (PRAMIPEXOL) 0.25MG 0-0-0-1
     Route: 048
  9. TIZANIDINE [Concomitant]
     Active Substance: TIZANIDINE
     Indication: Product used for unknown indication
     Dosage: 4 MILLIGRAM DAILY; SIRDALUD  (TIZANIDIN) 4MG 0-0-1-0
     Route: 048
  10. FLUTICASONE FUROATE\VILANTEROL TRIFENATATE [Concomitant]
     Active Substance: FLUTICASONE FUROATE\VILANTEROL TRIFENATATE
     Indication: Product used for unknown indication
     Dosage: RELVAR  ELLIPTA  (VILANTEROL/FLUTICASONE) 184/22 MCG INDIVIDUAL INHALATION; AS NECESSARY , UNIT DOSE
     Route: 055
  11. VENTOLIN [Concomitant]
     Active Substance: ALBUTEROL SULFATE
     Indication: Product used for unknown indication
     Dosage: VENTOLIN  (SALBUTAMOL) 0.1MG INHALATION AS NEEDED; AS NECESSARY , UNIT DOSE : 0.1 MG , FREQUENCY TIM
     Route: 055
  12. FLUTICASONE FUROATE [Concomitant]
     Active Substance: FLUTICASONE FUROATE
     Indication: Product used for unknown indication
     Dosage: AVAMYS  NASAL SPRAY (FLUTICASONE) 2-0-0-0, NASAL
     Route: 045
  13. MOMETASONE FUROATE [Concomitant]
     Active Substance: MOMETASONE FUROATE
     Indication: Product used for unknown indication
     Dosage: MOMETASON NASAL SPRAY 2-0-0-0, NASAL, IN RESERVE , UNIT DOSE : 1 DF , FREQUENCY TIME : 24 HOUR
     Route: 045
  14. TOPSYM [Concomitant]
     Indication: Product used for unknown indication
     Dosage: 2 DOSAGE FORMS DAILY; TOPSYM  GEL (FLUCINONIDE) 1-0-1-0, TOPICAL, UNKNOWN IF UNTIL FURTHER NOTICE
     Route: 048
  15. ZOMIG [Concomitant]
     Active Substance: ZOLMITRIPTAN
     Indication: Product used for unknown indication
     Dosage: ZOMIG  (ZOLMITRIPTAN) 2.5MG, STOPPED ON 05/25/2022, RESTARTED ON 05/28/2022 IN RESERVE , UNIT DOSE :
     Route: 048
     Dates: end: 20220525
  16. ZOMIG [Concomitant]
     Active Substance: ZOLMITRIPTAN
     Dosage: ZOMIG  (ZOLMITRIPTAN) 2.5MG, STOPPED ON 05/25/2022, RESTARTED ON 05/28/2022 IN RESERVE , UNIT DOSE :
     Route: 048
     Dates: start: 20220528
  17. ACTIVATED CHARCOAL\DIMETHICONE [Concomitant]
     Active Substance: ACTIVATED CHARCOAL\DIMETHICONE
     Indication: Product used for unknown indication
     Dosage: FLATULEX  (SIMETHICONE) 42MG, STOPPED ON 05/25/2022, RESTARTED ON 05/28/2022 IN RESERVE; AS NO  , UN
     Route: 048
     Dates: end: 20220525
  18. ACTIVATED CHARCOAL\DIMETHICONE [Concomitant]
     Active Substance: ACTIVATED CHARCOAL\DIMETHICONE
     Dosage: FLATULEX  (SIMETHICONE) 42MG, STOPPED ON 05/25/2022, RESTARTED ON 05/28/2022 IN RESERVE; AS NO , UNI
     Route: 048
     Dates: start: 20220528
  19. HERBALS [Concomitant]
     Active Substance: HERBALS
     Indication: Product used for unknown indication
     Dosage: IBEROGAST  (MEDICINE AGAINST INDIGESTION, HERBAL) STOPPED ON 05/25/2022, ON 05/28/2022 ,UNIT DOSE :
     Route: 048
     Dates: end: 20220525
  20. HERBALS [Concomitant]
     Active Substance: HERBALS
     Dosage: IBEROGAST  (MEDICINE AGAINST INDIGESTION, HERBAL) STOPPED ON 05/25/2022, ON 05/28/2022  , UNIT DOSE
     Route: 048
     Dates: start: 20220528
  21. NABIXIMOLS [Concomitant]
     Active Substance: NABIXIMOLS
     Indication: Product used for unknown indication
     Dosage: SATIVEX  (CANNABIDIOL) 2.7MG/1 DOSE STOPPED ON 05/25/2022, RESTARTED ON 05/28/2022 IN RESERVE , UNIT
     Route: 048
     Dates: end: 20220525
  22. NABIXIMOLS [Concomitant]
     Active Substance: NABIXIMOLS
     Dosage: SATIVEX  (CANNABIDIOL) 2.7MG/1 DOSE STOPPED ON 05/25/2022, RESTARTED ON 05/28/2022 IN RESERVE , UNIT
     Route: 048
     Dates: start: 20220528

REACTIONS (3)
  - Pancytopenia [Unknown]
  - Polydipsia [Recovering/Resolving]
  - Dry mouth [Recovering/Resolving]

NARRATIVE: CASE EVENT DATE: 20220401
